FAERS Safety Report 17228086 (Version 1)
Quarter: 2020Q1

REPORT INFORMATION
  Report Type: Spontaneous
  Country: DE (occurrence: DE)
  Receive Date: 20200103
  Receipt Date: 20200103
  Transmission Date: 20200409
  Serious: Yes (Death, Other)
  Sender: FDA-Public Use
  Company Number: DE-TEVA-2019-DE-1160721

PATIENT
  Age: 69 Year

DRUGS (2)
  1. VARGATEF [Suspect]
     Active Substance: NINTEDANIB
     Indication: ADENOCARCINOMA
     Route: 065
  2. DOCETAXEL. [Suspect]
     Active Substance: DOCETAXEL
     Indication: ADENOCARCINOMA
     Route: 065

REACTIONS (4)
  - Malignant neoplasm progression [Unknown]
  - Diarrhoea [Unknown]
  - Vertigo [Unknown]
  - Death [Fatal]

NARRATIVE: CASE EVENT DATE: 20180413
